FAERS Safety Report 21347823 (Version 2)
Quarter: 2022Q4

REPORT INFORMATION
  Report Type: Other
  Country: RU (occurrence: None)
  Receive Date: 20220919
  Receipt Date: 20221128
  Transmission Date: 20230113
  Serious: Yes (Hospitalization, Other)
  Sender: FDA-Public Use
  Company Number: RU-ROCHE-2907536

PATIENT
  Age: 56 Year
  Sex: Female

DRUGS (2)
  1. SATRALIZUMAB [Suspect]
     Active Substance: SATRALIZUMAB
     Indication: Neuromyelitis optica spectrum disorder
     Dosage: THE PATIENT CONTINUED THERAPY WITH SATRALIZUMAB: 06/OCT/2021, 03/NOV/2021, 01/DEC/2021, 29/DEC/2021,
     Route: 042
     Dates: start: 20210616
  2. RITUXIMAB [Suspect]
     Active Substance: RITUXIMAB
     Indication: Neuromyelitis optica spectrum disorder
     Dosage: ON 06/OCT/2022, 20 OCT/2022, RITUXIMAB GIVEN
     Route: 041
     Dates: start: 20201005

REACTIONS (12)
  - Therapeutic product ineffective [Unknown]
  - Spinal pain [Recovering/Resolving]
  - Sensory disturbance [Recovering/Resolving]
  - Neoplasm malignant [Unknown]
  - Paracancerous pneumonia [Unknown]
  - Pulmonary tuberculoma [Unknown]
  - Abnormal faeces [Unknown]
  - Urine output decreased [Unknown]
  - Pruritus [Unknown]
  - Erythema [Unknown]
  - Musculoskeletal pain [Unknown]
  - Off label use [Unknown]

NARRATIVE: CASE EVENT DATE: 20210701
